FAERS Safety Report 14719216 (Version 2)
Quarter: 2018Q4

REPORT INFORMATION
  Report Type: Spontaneous
  Country: GB (occurrence: GB)
  Receive Date: 20180405
  Receipt Date: 20181109
  Transmission Date: 20190204
  Serious: Yes (Death, Other)
  Sender: FDA-Public Use
  Company Number: GB-AUROBINDO-AUR-APL-2018-017844

PATIENT
  Age: 67 Year
  Sex: Male

DRUGS (7)
  1. TYGACIL [Suspect]
     Active Substance: TIGECYCLINE
     Indication: ENTEROCOCCAL INFECTION
     Dosage: 100 MILLIGRAM
     Route: 065
  2. TYGACIL [Suspect]
     Active Substance: TIGECYCLINE
     Indication: SEPSIS
  3. COLISTIN [Suspect]
     Active Substance: COLISTIN
     Indication: ENTEROCOCCAL INFECTION
     Dosage: 2 MU
     Route: 065
  4. FLUCONAZOLE. [Suspect]
     Active Substance: FLUCONAZOLE
     Indication: SEPSIS
     Dosage: UNK
     Route: 065
  5. COLISTIN [Suspect]
     Active Substance: COLISTIN
     Indication: SEPSIS
     Dosage: 3 MU TDS (3)
  6. FLUCONAZOLE. [Suspect]
     Active Substance: FLUCONAZOLE
     Indication: ENTEROCOCCAL INFECTION
  7. AMIKACIN SULFATE. [Suspect]
     Active Substance: AMIKACIN SULFATE
     Indication: BILIARY SEPSIS
     Dosage: UNK
     Route: 065

REACTIONS (4)
  - Drug ineffective [Fatal]
  - Abdominal adhesions [Unknown]
  - Multiple organ dysfunction syndrome [Fatal]
  - Gallstone ileus [Unknown]

NARRATIVE: CASE EVENT DATE: 20180301
